FAERS Safety Report 8238185-1 (Version None)
Quarter: 2012Q1

REPORT INFORMATION
  Report Type: 
  Country: None (occurrence: None)
  Receive Date: 20120327
  Receipt Date: 20120320
  Transmission Date: 20120608
  Serious: Yes (Other)
  Sender: FDA-Public Use
  Company Number: US-BAYER-2012-027867

PATIENT
  Age: 47 Year
  Sex: Female

DRUGS (1)
  1. BEYAZ [Suspect]
     Dosage: 1 DF, QD
     Route: 048
     Dates: start: 20110801

REACTIONS (4)
  - HEADACHE [None]
  - ABDOMINAL DISTENSION [None]
  - ENDOMETRIAL DISORDER [None]
  - GENITAL HAEMORRHAGE [None]
